FAERS Safety Report 23430272 (Version 1)
Quarter: 2024Q1

REPORT INFORMATION
  Report Type: Spontaneous
  Country: US (occurrence: US)
  Receive Date: 20240123
  Receipt Date: 20240123
  Transmission Date: 20240410
  Serious: Yes (Hospitalization)
  Sender: FDA-Public Use
  Company Number: US-STRIDES ARCOLAB LIMITED-2023SP007003

PATIENT
  Age: 58 Year
  Sex: Male

DRUGS (8)
  1. CALCITRIOL [Suspect]
     Active Substance: CALCITRIOL
     Indication: Acute kidney injury
     Dosage: 0.25 MILLIGRAM, THRICE  A WEEK
     Route: 065
  2. CALCITRIOL [Suspect]
     Active Substance: CALCITRIOL
     Indication: Hypocalcaemia
  3. CALCIUM GLUCONATE [Suspect]
     Active Substance: CALCIUM GLUCONATE
     Indication: Acute kidney injury
     Dosage: UNK
     Route: 042
  4. CALCIUM GLUCONATE [Suspect]
     Active Substance: CALCIUM GLUCONATE
     Indication: Hypocalcaemia
  5. VITAMIN D [Suspect]
     Active Substance: VITAMIN D NOS
     Indication: Acute kidney injury
     Dosage: UNK
     Route: 065
  6. VITAMIN D [Suspect]
     Active Substance: VITAMIN D NOS
     Indication: Hypocalcaemia
  7. CALCIUM ACETATE [Suspect]
     Active Substance: CALCIUM ACETATE
     Indication: Acute kidney injury
     Dosage: UNK
     Route: 065
  8. CALCIUM ACETATE [Suspect]
     Active Substance: CALCIUM ACETATE
     Indication: Hypocalcaemia

REACTIONS (1)
  - Hypercalcaemia [Recovered/Resolved]
